FAERS Safety Report 4282920-4 (Version None)
Quarter: 2004Q1

REPORT INFORMATION
  Report Type: 
  Country: None (occurrence: None)
  Receive Date: 20040130
  Receipt Date: 20031117
  Transmission Date: 20041129
  Serious: Yes (Other)
  Sender: FDA-Public Use
  Company Number: US-BRISTOL-MYERS SQUIBB COMPANY-12439071

PATIENT
  Age: 38 Year
  Sex: Female

DRUGS (6)
  1. SERZONE [Suspect]
     Dosage: IN NOVEMBER 2000, DAILY DOSE CHANGED TO 200 MG AM AND 400 MG AT BEDTIME
     Route: 048
     Dates: start: 20000701, end: 20010101
  2. PRILOSEC [Suspect]
     Dates: start: 19990214
  3. DARVON [Suspect]
     Dates: end: 20010101
  4. FLEXERIL [Suspect]
     Dates: start: 19990220
  5. ULTRAM [Suspect]
     Dates: start: 19990220
  6. IMITREX [Concomitant]

REACTIONS (1)
  - HEPATITIS [None]
